FAERS Safety Report 5362299-7 (Version None)
Quarter: 2007Q2

REPORT INFORMATION
  Report Type: 
  Country: None (occurrence: None)
  Receive Date: 20070619
  Receipt Date: 20070618
  Transmission Date: 20071010
  Serious: Yes (Death)
  Sender: FDA-Public Use
  Company Number: A0657708A

PATIENT
  Age: 87 Year
  Sex: Female
  Weight: 58 kg

DRUGS (2)
  1. SERETIDE [Suspect]
     Indication: DYSPNOEA
     Dates: start: 20061001, end: 20070518
  2. CELESTONE [Concomitant]
     Dosage: 5ML TWICE PER DAY
     Dates: start: 19890601, end: 20070518

REACTIONS (1)
  - DEATH [None]
